FAERS Safety Report 18767492 (Version 1)
Quarter: 2021Q1

REPORT INFORMATION
  Report Type: Spontaneous
  Country: US (occurrence: US)
  Receive Date: 20210121
  Receipt Date: 20210121
  Transmission Date: 20210419
  Serious: Yes (Hospitalization, Other)
  Sender: FDA-Public Use
  Company Number: US-SUN PHARMACEUTICAL INDUSTRIES LTD-2021R1-276310

PATIENT
  Age: 55 Year
  Sex: Female

DRUGS (1)
  1. ERGOCALCIFEROL. [Suspect]
     Active Substance: ERGOCALCIFEROL
     Indication: VITAMIN D DEFICIENCY
     Dosage: 50000 UNITS, DAILY
     Route: 065

REACTIONS (3)
  - Acute kidney injury [Recovering/Resolving]
  - Incorrect dose administered [Unknown]
  - Hypercalcaemia [Recovering/Resolving]
